FAERS Safety Report 12642844 (Version 6)
Quarter: 2017Q3

REPORT INFORMATION
  Report Type: Report from Study
  Country: IL (occurrence: IL)
  Receive Date: 20160811
  Receipt Date: 20170824
  Transmission Date: 20171127
  Serious: No
  Sender: FDA-Public Use
  Company Number: PHHY2014IL070635

PATIENT
  Age: 44 Year
  Sex: Female

DRUGS (3)
  1. TEGRETOL [Suspect]
     Active Substance: CARBAMAZEPINE
     Indication: PRODUCT USED FOR UNKNOWN INDICATION
     Dosage: UNK
     Route: 065
  2. BACLOFEN. [Concomitant]
     Active Substance: BACLOFEN
     Indication: MUSCLE SPASTICITY
     Dosage: 10 MG, BID
     Route: 065
     Dates: start: 20120814
  3. GILENYA [Suspect]
     Active Substance: FINGOLIMOD HYDROCHLORIDE
     Indication: MULTIPLE SCLEROSIS
     Dosage: UNK, QD
     Route: 048
     Dates: start: 20120814

REACTIONS (18)
  - Pelvic pain [Recovered/Resolved]
  - Pain in extremity [Recovered/Resolved]
  - Blood cholesterol increased [Unknown]
  - Myalgia [Recovered/Resolved]
  - Trigeminal neuralgia [Recovered/Resolved]
  - Sensory disturbance [Recovered/Resolved]
  - Limb injury [Recovered/Resolved]
  - Blood albumin decreased [Unknown]
  - Haematoma [Recovered/Resolved]
  - Trigeminal neuralgia [Unknown]
  - Heart rate decreased [Unknown]
  - Protein total decreased [Unknown]
  - Low density lipoprotein increased [Unknown]
  - Muscular weakness [Recovered/Resolved]
  - Non-cardiac chest pain [Recovered/Resolved]
  - Arthralgia [Recovered/Resolved]
  - Blood pressure diastolic decreased [Recovered/Resolved]
  - Neutrophil count increased [Unknown]

NARRATIVE: CASE EVENT DATE: 20120815
